FAERS Safety Report 24259664 (Version 2)
Quarter: 2024Q4

REPORT INFORMATION
  Report Type: Spontaneous
  Country: BR (occurrence: BR)
  Receive Date: 20240828
  Receipt Date: 20241003
  Transmission Date: 20250114
  Serious: No
  Sender: TOLMAR
  Company Number: BR-TOLMAR, INC.-24BR051673

PATIENT
  Age: 9 Year
  Sex: Female

DRUGS (5)
  1. ELIGARD [Suspect]
     Active Substance: LEUPROLIDE ACETATE
     Indication: Precocious puberty
     Dosage: 45 MILLIGRAM, Q 6 MONTH
     Dates: start: 20240801
  2. ELIGARD [Suspect]
     Active Substance: LEUPROLIDE ACETATE
     Dosage: 45 MILLIGRAM, Q 6 MONTH
     Dates: start: 2021
  3. ALBUTEROL [Concomitant]
     Active Substance: ALBUTEROL
     Indication: Cough
     Dosage: 100 MICROGRAM,4 JETS EVERY 4 HOURS
  4. BECLOMETHASONE DIPROPIONATE [Concomitant]
     Active Substance: BECLOMETHASONE DIPROPIONATE
     Indication: Product used for unknown indication
     Dosage: 250 MICROGRAM, 1 JET EVERY 12 HOURS WITH SPACER
  5. BUDESONIDE [Concomitant]
     Active Substance: BUDESONIDE
     Indication: Rhinitis
     Dosage: 32 MICROGRAM, 1 JET IN EACH NOSTRIL ONCE A DAY

REACTIONS (4)
  - Wrong technique in product usage process [Unknown]
  - Intercepted product preparation error [Unknown]
  - Device leakage [Unknown]
  - Syringe issue [Unknown]

NARRATIVE: CASE EVENT DATE: 20240801
